FAERS Safety Report 11070127 (Version 1)
Quarter: 2015Q2

REPORT INFORMATION
  Report Type: Spontaneous
  Country: SE (occurrence: SE)
  Receive Date: 20150427
  Receipt Date: 20150427
  Transmission Date: 20150821
  Serious: Yes (Other)
  Sender: FDA-Public Use
  Company Number: SE-TEVA-557335ISR

PATIENT
  Age: 25 Year
  Sex: Male

DRUGS (1)
  1. ZOLPIDEM [Suspect]
     Active Substance: ZOLPIDEM\ZOLPIDEM TARTRATE

REACTIONS (4)
  - Hallucination [Unknown]
  - Amnesia [Unknown]
  - Overdose [Unknown]
  - Psychomotor hyperactivity [Unknown]
